FAERS Safety Report 6783508-3 (Version None)
Quarter: 2010Q2

REPORT INFORMATION
  Report Type: 
  Country: None (occurrence: None)
  Receive Date: 20100622
  Receipt Date: 20100618
  Transmission Date: 20101027
  Serious: Yes (Death, Other)
  Sender: FDA-Public Use
  Company Number: PHHY2010JP39972

PATIENT
  Age: 70 Year
  Sex: Female

DRUGS (1)
  1. AFINITOR [Suspect]
     Indication: RENAL CANCER
     Dosage: 10 MG DAILY
     Route: 048
     Dates: start: 20100506, end: 20100601

REACTIONS (3)
  - DEATH [None]
  - INTERSTITIAL LUNG DISEASE [None]
  - STOMATITIS [None]
